FAERS Safety Report 12400044 (Version 2)
Quarter: 2016Q2

REPORT INFORMATION
  Report Type: Spontaneous
  Country: IT (occurrence: IT)
  Receive Date: 20160524
  Receipt Date: 20160609
  Transmission Date: 20160815
  Serious: Yes (Other)
  Sender: FDA-Public Use
  Company Number: IT-TEVA-661749ACC

PATIENT
  Age: 54 Year
  Sex: Male

DRUGS (1)
  1. AMLODIPINA TEVA [Suspect]
     Active Substance: AMLODIPINE BESYLATE
     Indication: BLOOD PRESSURE ABNORMAL
     Dates: start: 201410

REACTIONS (3)
  - Abdominal discomfort [Not Recovered/Not Resolved]
  - Abdominal distension [Not Recovered/Not Resolved]
  - Neuroectodermal neoplasm [Unknown]

NARRATIVE: CASE EVENT DATE: 201410
